FAERS Safety Report 9081969 (Version 1)
Quarter: 2013Q1

REPORT INFORMATION
  Report Type: Report from Study
  Country: US (occurrence: US)
  Receive Date: 20130130
  Receipt Date: 20130130
  Transmission Date: 20140127
  Serious: No
  Sender: FDA-Public Use
  Company Number: US-ABBOTT-12P-163-0965389-00

PATIENT
  Age: 61 Year
  Sex: Female

DRUGS (11)
  1. HUMIRA 40 MG/0.8 ML PEN [Suspect]
     Indication: RHEUMATOID ARTHRITIS
     Dates: start: 20120525
  2. ADVAIR INH [Concomitant]
     Indication: ASTHMA
     Route: 055
  3. VENTOLIN INH [Concomitant]
     Indication: ASTHMA
  4. FOLIC ACID [Concomitant]
     Indication: PRODUCT USED FOR UNKNOWN INDICATION
  5. SERTRALINE [Concomitant]
     Indication: DEPRESSION
  6. SINGULAIR [Concomitant]
     Indication: ASTHMA
  7. METHOTREXATE [Concomitant]
     Indication: SYSTEMIC LUPUS ERYTHEMATOSUS
     Dosage: 5 PILLS ONCE WEEKLY
  8. VIT D [Concomitant]
     Indication: PRODUCT USED FOR UNKNOWN INDICATION
     Dosage: ONCE DAILY, IN THE MORNING
  9. SYNTHROID [Concomitant]
     Indication: THYROID DISORDER
     Dosage: ONCE DAILY, IN THE MORNING
  10. XALATAN [Concomitant]
     Indication: GLAUCOMA
     Dosage: EYEDROPS, ONE DROP EACH EYE, ONCE DAILY AT BEDTIME
  11. O2 [Concomitant]
     Indication: SLEEP APNOEA SYNDROME
     Dosage: NC AT BEDTIME

REACTIONS (1)
  - Diabetes mellitus [Not Recovered/Not Resolved]
